FAERS Safety Report 23317868 (Version 1)
Quarter: 2023Q4

REPORT INFORMATION
  Report Type: Spontaneous
  Country: JP (occurrence: JP)
  Receive Date: 20231219
  Receipt Date: 20231219
  Transmission Date: 20240109
  Serious: Yes (Other)
  Sender: FDA-Public Use
  Company Number: JP-002147023-NVSJ2023JP017728

PATIENT
  Sex: Male

DRUGS (3)
  1. IMATINIB [Suspect]
     Active Substance: IMATINIB
     Indication: Chronic myeloid leukaemia
     Dosage: 400 MG
     Route: 048
     Dates: start: 201610
  2. IMATINIB [Suspect]
     Active Substance: IMATINIB
     Dosage: 600 MG
     Route: 048
     Dates: start: 201611
  3. IMATINIB [Suspect]
     Active Substance: IMATINIB
     Dosage: 500 MG
     Route: 048
     Dates: start: 201701, end: 201703

REACTIONS (2)
  - Pulmonary toxicity [Unknown]
  - Nausea [Unknown]
